FAERS Safety Report 9758463 (Version 1)
Quarter: 2013Q4

REPORT INFORMATION
  Report Type: Spontaneous
  Country: US (occurrence: None)
  Receive Date: 20131216
  Receipt Date: 20131216
  Transmission Date: 20140711
  Serious: No
  Sender: FDA-Public Use
  Company Number: CABO-13002496

PATIENT
  Age: 53 Year
  Sex: Male
  Weight: 70 kg

DRUGS (1)
  1. COMETRIQ [Suspect]
     Indication: THYROID CANCER
     Dosage: 140 MG, QD. ORAL?100 MG, QD, ORAL?60 MG, QD, ORAL

REACTIONS (11)
  - Hyperhidrosis [None]
  - Oral mucosal blistering [None]
  - Aphagia [None]
  - Diarrhoea [None]
  - Malaise [None]
  - Hypotension [None]
  - Dizziness [None]
  - Nausea [None]
  - Vomiting [None]
  - Retching [None]
  - Weight decreased [None]
